FAERS Safety Report 13227080 (Version 1)
Quarter: 2017Q1

REPORT INFORMATION
  Report Type: Spontaneous
  Country: US (occurrence: US)
  Receive Date: 20170213
  Receipt Date: 20170213
  Transmission Date: 20170428
  Serious: No
  Sender: FDA-Public Use
  Company Number: US-IGSA-GTI004283

PATIENT
  Age: 59 Year
  Sex: Male
  Weight: 103 kg

DRUGS (24)
  1. COMBIVENT [Concomitant]
     Active Substance: ALBUTEROL SULFATE\IPRATROPIUM BROMIDE
  2. PROLASTIN-C [Suspect]
     Active Substance: .ALPHA.1-PROTEINASE INHIBITOR HUMAN
     Indication: ALPHA-1 ANTI-TRYPSIN DEFICIENCY
     Route: 042
     Dates: start: 20160608
  3. MUPIROCIN. [Concomitant]
     Active Substance: MUPIROCIN
  4. COMTAN [Concomitant]
     Active Substance: ENTACAPONE
  5. PRAMIPEXOLE. [Concomitant]
     Active Substance: PRAMIPEXOLE
  6. PROLASTIN-C [Suspect]
     Active Substance: .ALPHA.1-PROTEINASE INHIBITOR HUMAN
     Indication: ALPHA-1 ANTI-TRYPSIN DEFICIENCY
     Route: 042
     Dates: start: 20160622
  7. SIMVASTATIN. [Concomitant]
     Active Substance: SIMVASTATIN
  8. CLOZAPINE. [Concomitant]
     Active Substance: CLOZAPINE
  9. CIALIS [Concomitant]
     Active Substance: TADALAFIL
  10. OXYGEN. [Concomitant]
     Active Substance: OXYGEN
  11. FUROSEMIDE. [Concomitant]
     Active Substance: FUROSEMIDE
  12. METOPROLOL. [Concomitant]
     Active Substance: METOPROLOL
  13. PROLASTIN-C [Suspect]
     Active Substance: .ALPHA.1-PROTEINASE INHIBITOR HUMAN
     Indication: ALPHA-1 ANTI-TRYPSIN DEFICIENCY
     Route: 042
     Dates: start: 20160601
  14. PROLASTIN-C [Suspect]
     Active Substance: .ALPHA.1-PROTEINASE INHIBITOR HUMAN
     Indication: ALPHA-1 ANTI-TRYPSIN DEFICIENCY
     Route: 042
     Dates: start: 20160615
  15. QVAR [Concomitant]
     Active Substance: BECLOMETHASONE DIPROPIONATE
  16. KLOR-CON [Concomitant]
     Active Substance: POTASSIUM CHLORIDE
  17. CARBIDOPA LEVODOPA [Concomitant]
     Active Substance: CARBIDOPA\LEVODOPA
  18. ALBUTEROL /00139501/ [Concomitant]
     Active Substance: ALBUTEROL
  19. SPIRONOLACTONE. [Concomitant]
     Active Substance: SPIRONOLACTONE
  20. MIRAPEX [Concomitant]
     Active Substance: PRAMIPEXOLE DIHYDROCHLORIDE
  21. ASA [Concomitant]
     Active Substance: ASPIRIN
  22. TUSSIN /00048001/ [Concomitant]
  23. ENALAPRIL [Concomitant]
     Active Substance: ENALAPRIL
  24. APOKYN [Concomitant]
     Active Substance: APOMORPHINE HYDROCHLORIDE

REACTIONS (1)
  - Fatigue [Recovered/Resolved]

NARRATIVE: CASE EVENT DATE: 20160602
